FAERS Safety Report 10404159 (Version 1)
Quarter: 2014Q1

REPORT INFORMATION
  Report Type: Spontaneous
  Country: US (occurrence: None)
  Receive Date: 20130916
  Receipt Date: 20130916
  Transmission Date: 20141002
  Serious: Yes (Hospitalization)
  Sender: FDA-Public Use
  Company Number: JPI-P-025409

PATIENT
  Age: 20 Year
  Sex: Female
  Weight: 97.52 kg

DRUGS (11)
  1. XYREM (500 MILLIGRAM/MILLILITERS, SOLUTION (SODIUM OXYBATE) [Suspect]
     Indication: CATAPLEXY
     Route: 048
     Dates: start: 20081217
  2. VENLAFAXINE HYDROCHLORIDE [Suspect]
     Indication: CATAPLEXY
     Route: 048
     Dates: start: 2010
  3. MEDROXYPROGESTERONE ACETATE [Suspect]
     Indication: MENORRHAGIA
  4. MAGNESIIUM OXIDE [Concomitant]
  5. SERTRALINE HYDROCHLORIDE [Concomitant]
  6. CHOLECALCIFEROL [Concomitant]
  7. MULTIVITAMINS [Concomitant]
  8. RANITIDINE [Concomitant]
  9. LORATADINE [Concomitant]
  10. ARMODAFINIL [Concomitant]
  11. NYSTATIN W/TRIAMCINOLONE [Concomitant]

REACTIONS (14)
  - Depression [None]
  - Condition aggravated [None]
  - Stress [None]
  - Suicidal ideation [None]
  - Menorrhagia [None]
  - Sleep paralysis [None]
  - Insomnia [None]
  - Feeling abnormal [None]
  - Weight decreased [None]
  - Influenza [None]
  - Headache [None]
  - Fatigue [None]
  - Decreased appetite [None]
  - Oropharyngeal pain [None]
